FAERS Safety Report 25240650 (Version 2)
Quarter: 2025Q3

REPORT INFORMATION
  Report Type: Spontaneous
  Country: EU (occurrence: EU)
  Receive Date: 20250425
  Receipt Date: 20250803
  Transmission Date: 20251021
  Serious: Yes (Death, Other)
  Sender: ALEXION PHARMACEUTICALS
  Company Number: EU-ASTRAZENECA-202412EEA013628LV

PATIENT
  Age: 68 Year
  Sex: Male

DRUGS (1)
  1. DAPAGLIFLOZIN [Suspect]
     Active Substance: DAPAGLIFLOZIN
     Indication: Cardiac failure

REACTIONS (1)
  - Cardiac failure chronic [Fatal]

NARRATIVE: CASE EVENT DATE: 20221231
